FAERS Safety Report 6272213-8 (Version None)
Quarter: 2009Q3

REPORT INFORMATION
  Report Type: 
  Country: None (occurrence: None)
  Receive Date: 20090717
  Receipt Date: 20090705
  Transmission Date: 20100115
  Serious: Yes (Other)
  Sender: FDA-Public Use
  Company Number: IL-ELI_LILLY_AND_COMPANY-IL200907002907

PATIENT
  Sex: Female

DRUGS (2)
  1. BYETTA [Suspect]
     Indication: DIABETES MELLITUS
     Dosage: 5 UG, UNK
     Route: 065
     Dates: start: 20090406, end: 20090506
  2. INSULIN [Concomitant]
     Dosage: UNK, 2/D
     Route: 065

REACTIONS (4)
  - FATIGUE [None]
  - HYPOGLYCAEMIA [None]
  - NAUSEA [None]
  - WEIGHT INCREASED [None]
